FAERS Safety Report 13679005 (Version 1)
Quarter: 2017Q2

REPORT INFORMATION
  Report Type: Spontaneous
  Country: GB (occurrence: GB)
  Receive Date: 20170622
  Receipt Date: 20170622
  Transmission Date: 20170830
  Serious: Yes (Life-Threatening, Hospitalization)
  Sender: FDA-Public Use
  Company Number: GB-PFIZER INC-2017270180

PATIENT
  Age: 86 Year
  Sex: Female

DRUGS (7)
  1. OMEPRAZOLE. [Concomitant]
     Active Substance: OMEPRAZOLE
     Dosage: UNK
  2. BISOPROLOL [Concomitant]
     Active Substance: BISOPROLOL
     Dosage: UNK
  3. DALTEPARIN SODIUM [Suspect]
     Active Substance: DALTEPARIN SODIUM
     Indication: THROMBOSIS PROPHYLAXIS
     Dosage: 2500 IU, 1X/DAY
     Route: 058
     Dates: start: 20170516, end: 20170609
  4. ALLOPURINOL. [Concomitant]
     Active Substance: ALLOPURINOL
     Dosage: UNK
  5. MOVICOL /08437601/ [Concomitant]
     Dosage: UNK
  6. SENNA /00571901/ [Concomitant]
     Active Substance: SENNOSIDES A AND B
     Dosage: UNK
  7. DOMPERIDONE [Concomitant]
     Active Substance: DOMPERIDONE
     Dosage: UNK

REACTIONS (2)
  - Hyponatraemia [Not Recovered/Not Resolved]
  - Hyperkalaemia [Not Recovered/Not Resolved]

NARRATIVE: CASE EVENT DATE: 20170525
